FAERS Safety Report 12776350 (Version 1)
Quarter: 2016Q3

REPORT INFORMATION
  Report Type: Report from Study
  Country: US (occurrence: US)
  Receive Date: 20160923
  Receipt Date: 20160923
  Transmission Date: 20161109
  Serious: Yes (Hospitalization)
  Sender: FDA-Public Use
  Company Number: US-009507513-1010USA01200

PATIENT
  Age: 72 Year
  Sex: Male
  Weight: 90.7 kg

DRUGS (35)
  1. TRAMADOL HYDROCHLORIDE. [Concomitant]
     Active Substance: TRAMADOL HYDROCHLORIDE
     Dosage: 50 G, QID
     Dates: start: 19970415
  2. INDERAL [Concomitant]
     Active Substance: PROPRANOLOL HYDROCHLORIDE
     Dosage: 20 MG, QD
     Route: 048
     Dates: start: 19941213
  3. SERTRALINE HYDROCHLORIDE. [Concomitant]
     Active Substance: SERTRALINE HYDROCHLORIDE
     Dosage: 100 MG, QD
  4. ADVAIR HFA [Concomitant]
     Active Substance: FLUTICASONE PROPIONATE\SALMETEROL XINAFOATE
     Dosage: 250/50 2 PUFFS DAILY
  5. ZOLOFT [Concomitant]
     Active Substance: SERTRALINE HYDROCHLORIDE
     Dosage: 100 MG, ONCE DAILY AT NIGHT
     Route: 048
     Dates: start: 20031208
  6. LASIX [Concomitant]
     Active Substance: FUROSEMIDE
     Dosage: 20 DF, QD
     Route: 048
     Dates: start: 20030815
  7. FEXMID [Concomitant]
     Active Substance: CYCLOBENZAPRINE HYDROCHLORIDE
     Dosage: 7.5 MG, BID
     Route: 048
     Dates: start: 20080206
  8. TAMSULOSIN HYDROCHLORIDE. [Concomitant]
     Active Substance: TAMSULOSIN HYDROCHLORIDE
     Dosage: 0.4 MG, BID
  9. REQUIP [Concomitant]
     Active Substance: ROPINIROLE HYDROCHLORIDE
     Dosage: 10 MG, QD
  10. METOPROLOL TARTRATE. [Concomitant]
     Active Substance: METOPROLOL TARTRATE
     Dosage: 25 MG, BID
  11. ASPIRIN. [Concomitant]
     Active Substance: ASPIRIN
     Dosage: 81 DF, QD
     Route: 048
     Dates: start: 1993
  12. SPIRIVA [Concomitant]
     Active Substance: TIOTROPIUM BROMIDE MONOHYDRATE
     Dosage: 18 MICROGRAM, QD
  13. RANEXA [Concomitant]
     Active Substance: RANOLAZINE
  14. NAPROXEN. [Suspect]
     Active Substance: NAPROXEN
     Indication: OSTEOARTHRITIS
     Dosage: UNK
     Route: 048
     Dates: start: 20080121, end: 20101112
  15. MS CONTIN [Concomitant]
     Active Substance: MORPHINE SULFATE
     Dosage: 15 MG, TID
     Route: 048
     Dates: start: 20080305
  16. MSIR [Concomitant]
     Active Substance: MORPHINE SULFATE
     Dosage: 15 MG, QD
     Route: 048
     Dates: start: 20080305
  17. PLAVIX [Concomitant]
     Active Substance: CLOPIDOGREL BISULFATE
     Dosage: 75 MG, QD
  18. ZOCOR [Concomitant]
     Active Substance: SIMVASTATIN
     Route: 048
  19. NAPROXEN. [Suspect]
     Active Substance: NAPROXEN
     Indication: RHEUMATOID ARTHRITIS
  20. NEXIUM [Concomitant]
     Active Substance: ESOMEPRAZOLE MAGNESIUM
     Indication: GASTROOESOPHAGEAL REFLUX PROPHYLAXIS
     Dosage: 40 MG, QD
     Route: 048
     Dates: start: 20080121
  21. TRENTAL [Concomitant]
     Active Substance: PENTOXIFYLLINE
     Dosage: 400 MG, QID
     Dates: start: 19950118
  22. LOTREL [Concomitant]
     Active Substance: AMLODIPINE BESYLATE\BENAZEPRIL HYDROCHLORIDE
     Dosage: 10/40 DF, QD
     Route: 048
     Dates: start: 20030821
  23. OXYGEN. [Concomitant]
     Active Substance: OXYGEN
     Dosage: 21-6-8 HOURS
     Route: 045
     Dates: start: 20080317
  24. ISOSORBIDE. [Concomitant]
     Active Substance: ISOSORBIDE
     Dosage: 60 MG, BID
  25. REGLAN [Suspect]
     Active Substance: METOCLOPRAMIDE HYDROCHLORIDE
     Indication: GASTROOESOPHAGEAL REFLUX DISEASE
     Dosage: 10 MG, QID
     Route: 048
     Dates: start: 19921207
  26. HYOSCYAMINE. [Concomitant]
     Active Substance: HYOSCYAMINE
     Dosage: UNK, BID
     Route: 048
     Dates: start: 20000203
  27. CRESTOR [Concomitant]
     Active Substance: ROSUVASTATIN CALCIUM
     Dosage: UNK, QD
     Route: 048
     Dates: start: 20080128
  28. CLOTRIMAZOLE. [Concomitant]
     Active Substance: CLOTRIMAZOLE
     Dosage: 10 MG, TID
  29. SINEMET [Suspect]
     Active Substance: CARBIDOPA\LEVODOPA
     Indication: PARKINSON^S DISEASE
     Dosage: 25/100 MG, TID
     Route: 048
     Dates: start: 20090417
  30. REGLAN [Suspect]
     Active Substance: METOCLOPRAMIDE HYDROCHLORIDE
     Dosage: 5 MG, TID
     Route: 048
     Dates: start: 20100124, end: 20100628
  31. DARVON [Concomitant]
     Active Substance: PROPOXYPHENE HYDROCHLORIDE
     Dosage: UNK, BID
     Route: 048
     Dates: start: 19950118
  32. FOSAMAX [Concomitant]
     Active Substance: ALENDRONATE SODIUM
     Dosage: 70 DF, QW
     Route: 048
     Dates: start: 20040512
  33. DEPAKOTE [Concomitant]
     Active Substance: DIVALPROEX SODIUM
     Dosage: 125 MG, BID
     Route: 048
     Dates: start: 20080527
  34. GABAPENTIN. [Concomitant]
     Active Substance: GABAPENTIN
     Dosage: 300 MG, TID
  35. ZANTAC [Concomitant]
     Active Substance: RANITIDINE HYDROCHLORIDE
     Dosage: 150 MG, BID

REACTIONS (2)
  - Urinary tract infection [Recovered/Resolved]
  - Mental status changes [Recovered/Resolved]

NARRATIVE: CASE EVENT DATE: 20100628
